FAERS Safety Report 18507579 (Version 1)
Quarter: 2020Q4

REPORT INFORMATION
  Report Type: Report from Study
  Country: US (occurrence: US)
  Receive Date: 20201116
  Receipt Date: 20201116
  Transmission Date: 20210114
  Serious: Yes (Hospitalization)
  Sender: FDA-Public Use
  Company Number: US-EXELIXIS-CABO-20031045

PATIENT
  Sex: Female
  Weight: 85 kg

DRUGS (5)
  1. CABOMETYX [Suspect]
     Active Substance: CABOZANTINIB S-MALATE
     Dosage: 40 MG, QD
     Route: 048
  2. CABOMETYX [Suspect]
     Active Substance: CABOZANTINIB S-MALATE
     Indication: RENAL CELL CARCINOMA
     Dosage: 60 MG, QD
     Route: 048
     Dates: start: 20200519
  3. WARFARIN [Concomitant]
     Active Substance: WARFARIN
     Dosage: UNK
  4. LENVIMA [Concomitant]
     Active Substance: LENVATINIB
     Dosage: UNK
  5. AFINITOR [Concomitant]
     Active Substance: EVEROLIMUS
     Dosage: UNK

REACTIONS (6)
  - Gastroenteritis [Unknown]
  - Fracture [Unknown]
  - Blister [Unknown]
  - Deep vein thrombosis [Unknown]
  - Fall [Unknown]
  - Palmar-plantar erythrodysaesthesia syndrome [Unknown]
